FAERS Safety Report 5189424-5 (Version None)
Quarter: 2006Q4

REPORT INFORMATION
  Report Type: 
  Country: None (occurrence: None)
  Receive Date: 20061218
  Receipt Date: 20061206
  Transmission Date: 20070319
  Serious: Yes (Hospitalization)
  Sender: FDA-Public Use
  Company Number: 230315M06USA

PATIENT
  Age: 26 Year
  Sex: Female

DRUGS (2)
  1. REBIF [Suspect]
     Indication: MULTIPLE SCLEROSIS
     Dosage: 44 MCG
     Dates: start: 20060401, end: 20061001
  2. MONOCLONAL ANTIBODY (MONOCLONAL ANTIBODIES) [Suspect]
     Dosage: ONCE
     Dates: start: 20061105, end: 20061105

REACTIONS (3)
  - AUTOIMMUNE HEPATITIS [None]
  - HEPATIC FAILURE [None]
  - HEPATITIS [None]
